FAERS Safety Report 4476260-8 (Version None)
Quarter: 2004Q3

REPORT INFORMATION
  Report Type: 
  Country: None (occurrence: None)
  Receive Date: 20040923
  Receipt Date: 20040813
  Transmission Date: 20050211
  Serious: No
  Sender: FDA-Public Use
  Company Number: USA040773974

PATIENT
  Age: 79 Year
  Sex: Female
  Weight: 47 kg

DRUGS (4)
  1. FORTEO [Suspect]
     Indication: OSTEOPOROSIS
     Dosage: 20 UG DAY
     Dates: start: 20040727
  2. VITAMINE E [Concomitant]
  3. LIDODERM (LIDOCAINE) [Concomitant]
  4. FOSAMAX [Concomitant]

REACTIONS (4)
  - INJECTION SITE ERYTHEMA [None]
  - MEDICATION ERROR [None]
  - MUSCLE CRAMP [None]
  - OVERDOSE [None]
